FAERS Safety Report 5943356-0 (Version None)
Quarter: 2008Q4

REPORT INFORMATION
  Report Type: 
  Country: None (occurrence: None)
  Receive Date: 20081105
  Receipt Date: 20081105
  Transmission Date: 20090506
  Serious: Yes (Hospitalization)
  Sender: FDA-Public Use
  Company Number: None

PATIENT
  Age: 86 Year
  Sex: Male
  Weight: 55.3 kg

DRUGS (1)
  1. WARFARIN SODIUM [Suspect]
     Indication: ATRIAL FIBRILLATION
     Dosage: 45 MG QWEEK PO
     Route: 048
     Dates: start: 20070927, end: 20081030

REACTIONS (3)
  - ANAEMIA [None]
  - ECCHYMOSIS [None]
  - INTERNATIONAL NORMALISED RATIO INCREASED [None]
